FAERS Safety Report 18529299 (Version 1)
Quarter: 2020Q4

REPORT INFORMATION
  Report Type: Spontaneous
  Country: RU (occurrence: RU)
  Receive Date: 20201120
  Receipt Date: 20201120
  Transmission Date: 20210114
  Serious: Yes (Other)
  Sender: FDA-Public Use
  Company Number: RU-009507513-2011RUS009405

PATIENT
  Age: 28 Year
  Sex: Female
  Weight: 62 kg

DRUGS (3)
  1. ATARAX [Concomitant]
     Active Substance: HYDROXYZINE HYDROCHLORIDE
     Indication: ANXIETY DISORDER
     Dosage: 25 MG, 1 TABLET AT NIGHT, 1 TIME PER MONTH
     Route: 048
  2. IMPLANON NXT [Suspect]
     Active Substance: ETONOGESTREL
     Indication: MENORRHAGIA
  3. IMPLANON NXT [Suspect]
     Active Substance: ETONOGESTREL
     Indication: CONTRACEPTION
     Dosage: 1 IMPLANT (1 DOSAGE FORM), RIGHT FOREARM, INNER SIDE
     Route: 059
     Dates: start: 20200911

REACTIONS (11)
  - Conversion disorder [Unknown]
  - Tearfulness [Unknown]
  - Candida test positive [Unknown]
  - Sensory disturbance [Unknown]
  - Cystitis [Unknown]
  - Bacterial vaginosis [Unknown]
  - Product use in unapproved indication [Unknown]
  - Product use issue [Unknown]
  - Nervousness [Unknown]
  - Menstruation irregular [Unknown]
  - Vaginal haemorrhage [Unknown]

NARRATIVE: CASE EVENT DATE: 2020
